FAERS Safety Report 19198330 (Version 1)
Quarter: 2021Q2

REPORT INFORMATION
  Report Type: Report from Study
  Country: IN (occurrence: IN)
  Receive Date: 20210430
  Receipt Date: 20210430
  Transmission Date: 20210717
  Serious: Yes (Death)
  Sender: FDA-Public Use
  Company Number: IN-KNIGHT THERAPEUTICS (USA) INC.-2110048

PATIENT
  Age: 4 Year

DRUGS (1)
  1. IMPAVIDO [Suspect]
     Active Substance: MILTEFOSINE
     Indication: VISCERAL LEISHMANIASIS

REACTIONS (1)
  - Therapeutic product effect incomplete [Fatal]
